FAERS Safety Report 5689869-0 (Version None)
Quarter: 2008Q1

REPORT INFORMATION
  Report Type: 
  Country: None (occurrence: None)
  Receive Date: 20080331
  Receipt Date: 20080331
  Transmission Date: 20080703
  Serious: No
  Sender: FDA-Public Use
  Company Number: None

PATIENT
  Age: 36 Year
  Sex: Male
  Weight: 83 kg

DRUGS (2)
  1. AVELOX [Suspect]
     Indication: PROPHYLAXIS
     Dosage: 400MG X1 IV
     Route: 042
     Dates: start: 20080307, end: 20080307
  2. AVELOX [Suspect]
     Indication: SURGERY
     Dosage: 400MG X1 IV
     Route: 042
     Dates: start: 20080307, end: 20080307

REACTIONS (2)
  - DRUG HYPERSENSITIVITY [None]
  - INFUSION RELATED REACTION [None]
